FAERS Safety Report 6924298-0 (Version None)
Quarter: 2010Q3

REPORT INFORMATION
  Report Type: 
  Country: None (occurrence: None)
  Receive Date: 20100811
  Receipt Date: 20100811
  Transmission Date: 20110219
  Serious: Yes (Hospitalization)
  Sender: FDA-Public Use
  Company Number: None

PATIENT
  Age: 36 Year
  Sex: Male
  Weight: 76 kg

DRUGS (1)
  1. PEG-ASPARAGINASE 3750 UNITS/5 ML ENZON [Suspect]
     Indication: NON-HODGKIN'S LYMPHOMA
     Dosage: 2500 UNITS/M2 X1 DOSE IV
     Route: 042
     Dates: start: 20100622, end: 20100622

REACTIONS (2)
  - FUNGAL INFECTION [None]
  - PANCREATITIS [None]
